FAERS Safety Report 7555792-X (Version None)
Quarter: 2011Q2

REPORT INFORMATION
  Report Type: 
  Country: None (occurrence: None)
  Receive Date: 20110618
  Receipt Date: 20110118
  Transmission Date: 20111010
  Serious: Yes (Other)
  Sender: FDA-Public Use
  Company Number: US-BAYER-201022210NA

PATIENT
  Age: 40 Year
  Sex: Female
  Weight: 88.435 kg

DRUGS (6)
  1. VERAMYST [Concomitant]
     Indication: MULTIPLE ALLERGIES
     Dosage: 27.5 MG, UNK
  2. LASIX [Concomitant]
  3. XYZAL [Concomitant]
     Indication: MULTIPLE ALLERGIES
     Dosage: 5 MG, UNK
  4. YAZ [Suspect]
     Indication: ACNE
     Dosage: UNK
     Dates: start: 20080301, end: 20080530
  5. YAZ [Suspect]
     Indication: PREMENSTRUAL SYNDROME
  6. YASMIN [Suspect]
     Indication: PRODUCT USED FOR UNKNOWN INDICATION
     Dates: start: 20080301, end: 20080501

REACTIONS (2)
  - PAIN [None]
  - DEEP VEIN THROMBOSIS [None]
